FAERS Safety Report 4341341-6 (Version None)
Quarter: 2004Q2

REPORT INFORMATION
  Report Type: 
  Country: None (occurrence: None)
  Receive Date: 20040412
  Receipt Date: 20030930
  Transmission Date: 20050107
  Serious: Yes (Hospitalization)
  Sender: FDA-Public Use
  Company Number: 03P-163-0235515-00

PATIENT
  Age: 70 Year
  Sex: Male

DRUGS (2)
  1. BIAXIN XL [Suspect]
     Indication: BRONCHITIS
     Dosage: 500 MG, PER ORAL
     Route: 048
     Dates: start: 20030801, end: 20030801
  2. SIMVASTATIN [Concomitant]

REACTIONS (1)
  - RHABDOMYOLYSIS [None]
